FAERS Safety Report 7724272-0 (Version None)
Quarter: 2011Q3

REPORT INFORMATION
  Report Type: 
  Country: None (occurrence: None)
  Receive Date: 20110829
  Receipt Date: 20110812
  Transmission Date: 20111222
  Serious: Yes (Hospitalization)
  Sender: FDA-Public Use
  Company Number: IPC201108-003134

PATIENT
  Age: 75 Year
  Sex: Female

DRUGS (3)
  1. HYDROXYCHLOROQUINE SULFATE [Suspect]
     Indication: RHEUMATOID ARTHRITIS
  2. ACE INHIBITOR [Concomitant]
  3. BETA-BLOCKER [Concomitant]

REACTIONS (11)
  - CARDIOTOXICITY [None]
  - HEART SOUNDS ABNORMAL [None]
  - BLOOD PRESSURE SYSTOLIC INCREASED [None]
  - SINUS TACHYCARDIA [None]
  - PULMONARY OEDEMA [None]
  - RALES [None]
  - LEFT VENTRICULAR HYPERTROPHY [None]
  - DIASTOLIC DYSFUNCTION [None]
  - LEFT VENTRICULAR FAILURE [None]
  - BUNDLE BRANCH BLOCK LEFT [None]
  - CARDIOMYOPATHY [None]
